FAERS Safety Report 20209410 (Version 2)
Quarter: 2022Q1

REPORT INFORMATION
  Report Type: Spontaneous
  Country: CH (occurrence: CH)
  Receive Date: 20211220
  Receipt Date: 20220202
  Transmission Date: 20220423
  Serious: Yes (Life-Threatening, Hospitalization, Other)
  Sender: FDA-Public Use
  Company Number: None

PATIENT
  Age: 63 Year
  Sex: Male

DRUGS (48)
  1. TRAMADOL HYDROCHLORIDE [Interacting]
     Active Substance: TRAMADOL HYDROCHLORIDE
     Indication: Procedural pain
     Dosage: 100 MILLIGRAM, 2/DAY
     Route: 048
     Dates: start: 20211114, end: 20211116
  2. TRAMADOL HYDROCHLORIDE [Interacting]
     Active Substance: TRAMADOL HYDROCHLORIDE
     Dosage: 25 MILLIGRAM, 4/DAY
     Route: 048
     Dates: start: 20211117
  3. TRAMADOL HYDROCHLORIDE [Interacting]
     Active Substance: TRAMADOL HYDROCHLORIDE
     Dosage: 50 MILLIGRAM, 4/DAY
     Route: 048
     Dates: start: 20211112
  4. CLOMETHIAZOLE EDISYLATE [Suspect]
     Active Substance: CLOMETHIAZOLE EDISYLATE
     Indication: Product used for unknown indication
     Dosage: 315 MILLIGRAM, 1/DAY
     Route: 065
     Dates: start: 20211110, end: 20211110
  5. CLOMETHIAZOLE EDISYLATE [Suspect]
     Active Substance: CLOMETHIAZOLE EDISYLATE
     Dosage: 192 MILLIGRAM, 4/DAY
     Route: 065
     Dates: start: 20211113, end: 20211114
  6. CLOMETHIAZOLE EDISYLATE [Suspect]
     Active Substance: CLOMETHIAZOLE EDISYLATE
     Dosage: 192 MILLIGRAM, 1/DAY
     Route: 048
     Dates: start: 20211115
  7. QUETIAPINE [Suspect]
     Active Substance: QUETIAPINE
     Indication: Product used for unknown indication
     Dosage: 25 MILLIGRAM, 2/DAY
     Route: 065
     Dates: start: 20211114, end: 20211115
  8. QUETIAPINE [Suspect]
     Active Substance: QUETIAPINE
     Dosage: 50 MILLIGRAM, 2/DAY
     Route: 048
     Dates: start: 20211116
  9. CORDARONE [Interacting]
     Active Substance: AMIODARONE HYDROCHLORIDE
     Indication: Atrial fibrillation
     Dosage: 300 MILLIGRAM, 1/DAY
     Route: 042
     Dates: start: 20211104, end: 20211104
  10. CORDARONE [Interacting]
     Active Substance: AMIODARONE HYDROCHLORIDE
     Dosage: 200 MILLIGRAM, 3/DAY
     Route: 042
     Dates: start: 20211109, end: 20211122
  11. CORDARONE [Interacting]
     Active Substance: AMIODARONE HYDROCHLORIDE
     Dosage: 200 MILLIGRAM, 1/DAY
     Route: 048
     Dates: start: 20211123
  12. MORPHINE [Suspect]
     Active Substance: MORPHINE
     Indication: Product used for unknown indication
     Dosage: 5 MILLIGRAM, ONCE
     Route: 042
     Dates: start: 20211105, end: 20211105
  13. CLONIDINE [Suspect]
     Active Substance: CLONIDINE
     Indication: Product used for unknown indication
     Dosage: 75 MICROGRAM, 2/DAY
     Route: 065
     Dates: start: 20211105, end: 20211106
  14. LORAZEPAM [Suspect]
     Active Substance: LORAZEPAM
     Indication: Product used for unknown indication
     Dosage: 2.5 MILLIGRAM, 3/DAY
     Route: 065
     Dates: start: 20211114, end: 20211118
  15. LORAZEPAM [Suspect]
     Active Substance: LORAZEPAM
     Dosage: 1 MILLIGRAM, 3/DAY
     Route: 065
     Dates: start: 20211119, end: 20211123
  16. ATARAX [Suspect]
     Active Substance: HYDROXYZINE HYDROCHLORIDE
     Indication: Product used for unknown indication
     Dosage: 25 MILLIGRAM, 1/DAY
     Route: 065
     Dates: start: 20211110, end: 20211110
  17. ATARAX [Suspect]
     Active Substance: HYDROXYZINE HYDROCHLORIDE
     Dosage: 25 MILLIGRAM, 3/DAY
     Route: 065
     Dates: start: 20211111, end: 20211112
  18. OXAZEPAM [Suspect]
     Active Substance: OXAZEPAM
     Indication: Product used for unknown indication
     Dosage: 15 MILLIGRAM, 3/DAY
     Route: 065
     Dates: start: 20211113, end: 20211114
  19. ENOXAPARIN SODIUM [Concomitant]
     Active Substance: ENOXAPARIN SODIUM
     Dosage: UNK
     Route: 058
     Dates: start: 20211111
  20. AMLODIPINE [Concomitant]
     Active Substance: AMLODIPINE BESYLATE
     Dosage: UNK, AS NEEDED
     Route: 048
     Dates: start: 20211106
  21. AMLODIPINE [Concomitant]
     Active Substance: AMLODIPINE BESYLATE
     Dosage: UNK
     Route: 048
     Dates: start: 20211109
  22. EZETIMIBE [Concomitant]
     Active Substance: EZETIMIBE
     Dosage: UNK
     Route: 048
     Dates: start: 20211111
  23. LEVETIRACETAM [Concomitant]
     Active Substance: LEVETIRACETAM
     Dosage: UNK
     Route: 048
     Dates: start: 20211107
  24. ASPIRIN DL-LYSINE [Concomitant]
     Active Substance: ASPIRIN DL-LYSINE
     Dosage: UNK
     Route: 048
     Dates: start: 20211117
  25. MOVICOL [Concomitant]
     Active Substance: POLYETHYLENE GLYCOL 3350\POTASSIUM CHLORIDE\SODIUM BICARBONATE\SODIUM CHLORIDE
     Dosage: UNK
     Route: 048
     Dates: start: 20211112
  26. DAFALGAN [Concomitant]
     Active Substance: ACETAMINOPHEN
     Dosage: UNK
     Route: 048
     Dates: start: 20211112
  27. PERINDOPRIL ARGININE [Concomitant]
     Active Substance: PERINDOPRIL ARGININE
     Dosage: UNK
     Route: 048
     Dates: start: 20211112
  28. SODIUM PICOSULFATE [Concomitant]
     Active Substance: SODIUM PICOSULFATE
     Dosage: UNK
     Route: 048
  29. CRESTOR [Concomitant]
     Active Substance: ROSUVASTATIN CALCIUM
     Dosage: UNK
     Route: 048
     Dates: start: 20211104
  30. ALDACTONE [Concomitant]
     Active Substance: SPIRONOLACTONE
     Dosage: UNK
     Route: 048
     Dates: start: 20211109
  31. NOVORAPID [Concomitant]
     Active Substance: INSULIN ASPART
     Dosage: UNK
     Route: 058
  32. TRAVAD PHOSPHATE [Concomitant]
     Dosage: UNK, AS NEEDED
     Route: 054
  33. AMOXICILLIN TRIHYDRATE [Concomitant]
     Active Substance: AMOXICILLIN
     Dosage: UNK
     Route: 065
     Dates: start: 20211104, end: 20211105
  34. MOMETASONE [Concomitant]
     Active Substance: MOMETASONE
     Dosage: UNK
     Route: 042
     Dates: start: 20211104, end: 20211105
  35. DEXAMETHASONE [Concomitant]
     Active Substance: DEXAMETHASONE
     Dosage: UNK
     Route: 065
     Dates: start: 20211105, end: 20211107
  36. ACETAMINOPHEN [Concomitant]
     Active Substance: ACETAMINOPHEN
     Dosage: UNK
     Route: 042
     Dates: start: 20211104, end: 20211105
  37. ACETAMINOPHEN [Concomitant]
     Active Substance: ACETAMINOPHEN
     Dosage: UNK
     Route: 048
     Dates: start: 20211105, end: 20211107
  38. SODIUM PHOSPHATE [Concomitant]
     Active Substance: SODIUM PHOSPHATE
     Dosage: UNK
     Route: 065
     Dates: start: 20211104, end: 20211107
  39. PIPERACILLIN AND TAZOBACTAM [Concomitant]
     Active Substance: PIPERACILLIN SODIUM\TAZOBACTAM SODIUM
     Dosage: UNK
     Route: 065
     Dates: start: 20211106, end: 20211107
  40. METOPROLOL [Concomitant]
     Active Substance: METOPROLOL
     Dosage: UNK
     Route: 042
     Dates: start: 20211104, end: 20211104
  41. METOPROLOL [Concomitant]
     Active Substance: METOPROLOL
     Dosage: UNK
     Route: 065
     Dates: start: 20211108, end: 20211108
  42. EMPAGLIFLOZIN\METFORMIN HYDROCHLORIDE [Concomitant]
     Active Substance: EMPAGLIFLOZIN\METFORMIN HYDROCHLORIDE
     Dosage: UNK
     Route: 065
     Dates: start: 20211105, end: 20211107
  43. ASPIRIN [Concomitant]
     Active Substance: ASPIRIN
     Dosage: UNK
     Route: 065
     Dates: start: 20211112, end: 20211116
  44. MOXONIDINE [Concomitant]
     Active Substance: MOXONIDINE
     Dosage: UNK
     Route: 065
     Dates: start: 20211109, end: 20211110
  45. MOXONIDINE [Concomitant]
     Active Substance: MOXONIDINE
     Dosage: UNK
     Route: 065
     Dates: start: 20211111, end: 20211111
  46. MELATONIN [Concomitant]
     Active Substance: MELATONIN
     Dosage: UNK
     Route: 065
     Dates: start: 20211113, end: 20211115
  47. POTASSIUM CITRATE [Concomitant]
     Active Substance: POTASSIUM CITRATE
     Dosage: UNK
     Route: 065
     Dates: start: 20211114, end: 20211116
  48. MIDAZOLAM [Concomitant]
     Active Substance: MIDAZOLAM
     Indication: Psychomotor hyperactivity
     Dosage: 2.5 MILLIGRAM
     Route: 042
     Dates: start: 20211114, end: 20211115

REACTIONS (5)
  - Respiratory failure [Recovered/Resolved]
  - Depressed level of consciousness [Recovered/Resolved]
  - Trismus [Recovered/Resolved]
  - Confusional state [Recovering/Resolving]
  - Drug interaction [Recovered/Resolved]

NARRATIVE: CASE EVENT DATE: 20211101
